FAERS Safety Report 8170058-5 (Version None)
Quarter: 2012Q1

REPORT INFORMATION
  Report Type: 
  Country: None (occurrence: None)
  Receive Date: 20120104
  Receipt Date: 20111123
  Transmission Date: 20120608
  Serious: No
  Sender: FDA-Public Use
  Company Number: 2011HGS-002861

PATIENT
  Age: 69 Year
  Sex: Female
  Weight: 109.7705 kg

DRUGS (10)
  1. NORCO (VICODIN) (PARACETAMOL, HYDROCODONE BITARTRATE) [Concomitant]
  2. VITAMIN K (PHYTOMENADIONE) (PHYTOMENADIONE) [Concomitant]
  3. LEVOTHYROXINE (LEVOTHYROIXNE) (LEVOTHYROXINE) [Concomitant]
  4. ESTROGEN (ESTROGEN NOS) (ESTROGEN NOS) [Concomitant]
  5. LANUST (INSULIN GLARGINE) (INSULIN GLARGINE) [Concomitant]
  6. ALLOPURINOL [Concomitant]
  7. VITAMINS (VITAMINS NOS) (VITAMINS NOS) [Concomitant]
  8. ZOLOFT [Concomitant]
  9. POTASSIUM (POTASSIUM) (POTASSIUM) [Concomitant]
  10. BENLYSTA [Suspect]
     Indication: SYSTEMIC LUPUS ERYTHEMATOSUS
     Dosage: 10 MG/KG, 1 IN 28 D, INTRAVENOUS DRIP
     Route: 041
     Dates: start: 20110725

REACTIONS (2)
  - DIABETES MELLITUS [None]
  - GOUT [None]
